FAERS Safety Report 16115834 (Version 1)
Quarter: 2019Q1

REPORT INFORMATION
  Report Type: Report from Study
  Country: CA (occurrence: CA)
  Receive Date: 20190326
  Receipt Date: 20190326
  Transmission Date: 20190418
  Serious: Yes (Other)
  Sender: FDA-Public Use
  Company Number: CA-BRISTOL-MYERS SQUIBB COMPANY-BMS-2016-100656

PATIENT
  Age: 71 Year
  Sex: Female

DRUGS (2)
  1. TYLENOL EXTRA STRENGTH [Concomitant]
     Active Substance: ACETAMINOPHEN
     Indication: PRODUCT USED FOR UNKNOWN INDICATION
     Route: 065
  2. ABATACEPT [Suspect]
     Active Substance: ABATACEPT
     Indication: RHEUMATOID ARTHRITIS
     Dosage: 750 MG, Q4WK
     Route: 042
     Dates: start: 20161108, end: 20180216

REACTIONS (28)
  - Adverse event [Unknown]
  - Nasopharyngitis [Unknown]
  - Hypotension [Unknown]
  - Fatigue [Not Recovered/Not Resolved]
  - Upper respiratory tract infection [Not Recovered/Not Resolved]
  - Nasal congestion [Recovering/Resolving]
  - Bladder cancer [Recovered/Resolved]
  - Breast disorder [Not Recovered/Not Resolved]
  - Headache [Recovered/Resolved]
  - Renal pain [Unknown]
  - Cough [Unknown]
  - Adverse event [Not Recovered/Not Resolved]
  - Hypoaesthesia [Unknown]
  - Urinary tract infection [Not Recovered/Not Resolved]
  - Pain [Unknown]
  - Hair growth abnormal [Not Recovered/Not Resolved]
  - Insomnia [Unknown]
  - Syncope [Not Recovered/Not Resolved]
  - Blood pressure increased [Recovered/Resolved]
  - Influenza [Unknown]
  - Cystitis [Recovering/Resolving]
  - Heart rate increased [Recovered/Resolved]
  - Back pain [Not Recovered/Not Resolved]
  - Rhinorrhoea [Unknown]
  - Skin wrinkling [Not Recovered/Not Resolved]
  - Dry skin [Not Recovered/Not Resolved]
  - Sensory disturbance [Recovered/Resolved]
  - Chills [Recovered/Resolved]

NARRATIVE: CASE EVENT DATE: 201611
